FAERS Safety Report 24577194 (Version 1)
Quarter: 2024Q4

REPORT INFORMATION
  Report Type: Spontaneous
  Country: US (occurrence: US)
  Receive Date: 20241104
  Receipt Date: 20241104
  Transmission Date: 20250115
  Serious: No
  Sender: PERRIGO
  Company Number: US-PERRIGO-23US012633

PATIENT
  Age: 88 Year
  Sex: Female
  Weight: 59.864 kg

DRUGS (5)
  1. POLYETHYLENE GLYCOL 3350 [Suspect]
     Active Substance: POLYETHYLENE GLYCOL 3350
     Indication: Constipation
     Dosage: 17G, QD PRN
     Route: 048
     Dates: start: 202304
  2. GABAPENTIN [Concomitant]
     Active Substance: GABAPENTIN
     Indication: Restless legs syndrome
     Dosage: UNK
     Route: 065
     Dates: start: 202305
  3. GABAPENTIN [Concomitant]
     Active Substance: GABAPENTIN
     Indication: Back pain
  4. PRAMIPEXOLE [Concomitant]
     Active Substance: PRAMIPEXOLE\PRAMIPEXOLE DIHYDROCHLORIDE
     Indication: Pain
     Dosage: UNK, QHS
     Route: 065
     Dates: start: 202205
  5. DONEPEZIL [Concomitant]
     Active Substance: DONEPEZIL
     Indication: Memory impairment
     Dosage: UNK
     Route: 065

REACTIONS (1)
  - Drug effect less than expected [Unknown]

NARRATIVE: CASE EVENT DATE: 20230401
